FAERS Safety Report 4918696-4 (Version None)
Quarter: 2006Q1

REPORT INFORMATION
  Report Type: 
  Country: None (occurrence: None)
  Receive Date: 20060221
  Receipt Date: 20060221
  Transmission Date: 20060701
  Serious: Yes (Other)
  Sender: FDA-Public Use
  Company Number: None

PATIENT
  Sex: Female

DRUGS (2)
  1. OXYCONTIN [Suspect]
     Indication: FACIAL PAIN
     Dosage: 20 MG BID
  2. OXYCONTIN [Suspect]
     Indication: NECK PAIN
     Dosage: 20 MG BID

REACTIONS (2)
  - NAUSEA [None]
  - VOMITING [None]
